FAERS Safety Report 7609916-6 (Version None)
Quarter: 2011Q3

REPORT INFORMATION
  Report Type: 
  Country: None (occurrence: None)
  Receive Date: 20110714
  Receipt Date: 20110711
  Transmission Date: 20111222
  Serious: Yes (Other)
  Sender: FDA-Public Use
  Company Number: CHPA2011CA09195

PATIENT
  Age: 44 Year
  Sex: Male

DRUGS (3)
  1. NICOTINE [Suspect]
     Dosage: UNK, UNK
     Route: 062
  2. THRIVE 4 MG [Suspect]
     Indication: SMOKING CESSATION THERAPY
     Dosage: 28 MG, QD
     Route: 048
     Dates: start: 20110710
  3. THRIVE 4 MG [Suspect]
     Dosage: UNK, UNK
     Route: 048

REACTIONS (4)
  - OVERDOSE [None]
  - TREATMENT NONCOMPLIANCE [None]
  - CHEST PAIN [None]
  - VASOCONSTRICTION [None]
